FAERS Safety Report 16115300 (Version 1)
Quarter: 2019Q1

REPORT INFORMATION
  Report Type: Spontaneous
  Country: US (occurrence: US)
  Receive Date: 20190325
  Receipt Date: 20190325
  Transmission Date: 20190418
  Serious: No
  Sender: FDA-Public Use
  Company Number: US-PFIZER INC-2019113543

PATIENT
  Sex: Female

DRUGS (1)
  1. CHANTIX [Suspect]
     Active Substance: VARENICLINE TARTRATE
     Dosage: UNK, 2X/DAY (BLUE PILLS TWICE A DAY)

REACTIONS (4)
  - Intentional product use issue [Unknown]
  - Dizziness [Unknown]
  - Disturbance in attention [Unknown]
  - Feeling abnormal [Unknown]
